FAERS Safety Report 25251642 (Version 1)
Quarter: 2025Q2

REPORT INFORMATION
  Report Type: Spontaneous
  Country: US (occurrence: US)
  Receive Date: 20250429
  Receipt Date: 20250429
  Transmission Date: 20250716
  Serious: Yes (Other)
  Sender: AZURITY PHARMACEUTICALS
  Company Number: US-AZURITY PHARMACEUTICALS, INC.-AZR202410-001010

PATIENT
  Sex: Female

DRUGS (6)
  1. HORIZANT [Suspect]
     Active Substance: GABAPENTIN ENACARBIL
     Indication: Restless legs syndrome
     Route: 048
     Dates: start: 2015, end: 2024
  2. HORIZANT [Suspect]
     Active Substance: GABAPENTIN ENACARBIL
     Indication: Neuralgia
  3. HORIZANT [Suspect]
     Active Substance: GABAPENTIN ENACARBIL
     Indication: Petit mal epilepsy
  4. VIMPAT [Suspect]
     Active Substance: LACOSAMIDE
     Indication: Restless legs syndrome
     Route: 065
  5. VIMPAT [Suspect]
     Active Substance: LACOSAMIDE
     Indication: Neuralgia
  6. VIMPAT [Suspect]
     Active Substance: LACOSAMIDE
     Indication: Petit mal epilepsy

REACTIONS (7)
  - Seizure [Unknown]
  - Malaise [Unknown]
  - Fall [Unknown]
  - Product use issue [Unknown]
  - Product use in unapproved indication [Unknown]
  - Insurance issue [Unknown]
  - Loss of employment [Unknown]
